FAERS Safety Report 15392249 (Version 1)
Quarter: 2018Q3

REPORT INFORMATION
  Report Type: Report from Study
  Country: TR (occurrence: TR)
  Receive Date: 20180917
  Receipt Date: 20180917
  Transmission Date: 20181010
  Serious: Yes (Other)
  Sender: FDA-Public Use
  Company Number: TR-BAYER-2018-172724

PATIENT
  Age: 64 Year
  Sex: Male

DRUGS (8)
  1. ASPIRIN. [Suspect]
     Active Substance: ASPIRIN
     Dosage: UNK
  2. LEFLUNOMIDE. [Concomitant]
     Active Substance: LEFLUNOMIDE
     Dosage: UNK
  3. CLOPIDOGREL [Concomitant]
     Active Substance: CLOPIDOGREL BISULFATE
     Dosage: UNK
  4. METHOTREXATE. [Interacting]
     Active Substance: METHOTREXATE
     Indication: AUTOINFLAMMATORY DISEASE
     Dosage: 15 MG, OW
  5. ACEMETACIN [Suspect]
     Active Substance: ACEMETACIN
     Dosage: UNK
  6. PANTOPRAZOLE [Interacting]
     Active Substance: PANTOPRAZOLE
  7. PREDNISONE. [Concomitant]
     Active Substance: PREDNISONE
  8. FOLIC ACID. [Concomitant]
     Active Substance: FOLIC ACID
     Dosage: UNK

REACTIONS (6)
  - Toxicity to various agents [None]
  - Pancytopenia [Recovered/Resolved]
  - Pyrexia [Recovered/Resolved]
  - Labelled drug-drug interaction medication error [None]
  - Pneumonitis [Recovered/Resolved]
  - Mucosal inflammation [Recovered/Resolved]
